FAERS Safety Report 11399787 (Version 1)
Quarter: 2015Q3

REPORT INFORMATION
  Report Type: Spontaneous
  Country: ES (occurrence: ES)
  Receive Date: 20150820
  Receipt Date: 20150820
  Transmission Date: 20151125
  Serious: Yes (Hospitalization)
  Sender: FDA-Public Use
  Company Number: ES-TEVA-525967ISR

PATIENT
  Age: 69 Year
  Sex: Female

DRUGS (4)
  1. VENLAFAXINE [Suspect]
     Active Substance: VENLAFAXINE HYDROCHLORIDE
     Dosage: 225 MILLIGRAM DAILY;
     Route: 048
  2. CLONAZEPAM. [Concomitant]
     Active Substance: CLONAZEPAM
     Dosage: 2 MILLIGRAM DAILY;
  3. MIRTAZAPINE. [Concomitant]
     Active Substance: MIRTAZAPINE
     Dosage: 15 MILLIGRAM DAILY;
  4. SERTRALINE [Concomitant]
     Active Substance: SERTRALINE HYDROCHLORIDE
     Dosage: 100 MILLIGRAM DAILY;

REACTIONS (17)
  - Disorientation [Recovered/Resolved]
  - Apathy [Recovered/Resolved]
  - Abulia [Recovered/Resolved]
  - Major depression [Recovered/Resolved]
  - Sedation [Recovered/Resolved]
  - Language disorder [Recovered/Resolved]
  - Bedridden [Recovered/Resolved]
  - Frontotemporal dementia [Recovered/Resolved]
  - Drug ineffective [Recovered/Resolved]
  - Asthenia [Unknown]
  - Psychomotor hyperactivity [Recovered/Resolved]
  - Treatment noncompliance [Unknown]
  - Nervousness [Recovered/Resolved]
  - Amnesia [Recovered/Resolved]
  - Cachexia [Recovered/Resolved]
  - Neglect of personal appearance [Recovered/Resolved]
  - Antisocial behaviour [Recovered/Resolved]
